FAERS Safety Report 9832479 (Version 1)
Quarter: 2014Q1

REPORT INFORMATION
  Report Type: Spontaneous
  Country: US (occurrence: US)
  Receive Date: 20140121
  Receipt Date: 20140121
  Transmission Date: 20141002
  Serious: Yes (Other)
  Sender: FDA-Public Use
  Company Number: US-MERCK-1401USA008066

PATIENT
  Age: 46 Year
  Sex: Female

DRUGS (4)
  1. JANUVIA [Suspect]
     Dosage: UNK
     Dates: start: 2013, end: 201305
  2. METFORMIN [Concomitant]
  3. GLYBURIDE [Concomitant]
  4. CINNAMON [Concomitant]

REACTIONS (4)
  - Pancreatitis [Recovering/Resolving]
  - Malaise [Recovering/Resolving]
  - Hepatic enzyme increased [Recovering/Resolving]
  - Lipase increased [Recovering/Resolving]
